FAERS Safety Report 16045797 (Version 2)
Quarter: 2019Q2

REPORT INFORMATION
  Report Type: Spontaneous
  Country: PL (occurrence: PL)
  Receive Date: 20190307
  Receipt Date: 20190411
  Transmission Date: 20190711
  Serious: Yes (Life-Threatening, Hospitalization, Other)
  Sender: FDA-Public Use
  Company Number: PL-ACCORD-073594

PATIENT
  Age: 58 Year
  Sex: Female

DRUGS (17)
  1. MEROPENEM. [Suspect]
     Active Substance: MEROPENEM
     Indication: PRODUCT USED FOR UNKNOWN INDICATION
  2. LINEZOLID. [Suspect]
     Active Substance: LINEZOLID
     Indication: PRODUCT USED FOR UNKNOWN INDICATION
  3. MIDAZOLAM [Suspect]
     Active Substance: MIDAZOLAM HYDROCHLORIDE
     Indication: SEDATION
     Dosage: UNK, UNKNOWN FREQ.
     Route: 065
  4. PIPERACILLIN SODIUM/TAZOBACTAM SODIUM [Suspect]
     Active Substance: PIPERACILLIN SODIUM\TAZOBACTAM SODIUM
     Indication: PRODUCT USED FOR UNKNOWN INDICATION
  5. MYCOPHENOLATE MOFETIL/MYCOPHENOLATE SODIUM/MYCOPHENOLIC ACID [Suspect]
     Active Substance: MYCOPHENOLIC ACID
     Indication: RENAL TRANSPLANT
  6. CICLOSPORIN [Suspect]
     Active Substance: CYCLOSPORINE
     Indication: PRODUCT USED FOR UNKNOWN INDICATION
  7. TICAGRELOR. [Suspect]
     Active Substance: TICAGRELOR
     Indication: PRODUCT USED FOR UNKNOWN INDICATION
  8. FLUCONAZOLE. [Suspect]
     Active Substance: FLUCONAZOLE
     Indication: PRODUCT USED FOR UNKNOWN INDICATION
  9. SULFAMETHOXAZOLE/TRIMETHOPRIM [Suspect]
     Active Substance: SULFAMETHOXAZOLE\TRIMETHOPRIM
     Indication: C-REACTIVE PROTEIN INCREASED
     Dosage: UNK
     Dates: start: 201612
  10. SULFAMETHOXAZOLE/TRIMETHOPRIM [Suspect]
     Active Substance: SULFAMETHOXAZOLE\TRIMETHOPRIM
     Dosage: UNK
     Dates: start: 201612
  11. SIMULECT [Suspect]
     Active Substance: BASILIXIMAB
     Indication: RENAL TRANSPLANT
  12. NOREPINEPHRINE. [Concomitant]
     Active Substance: NOREPINEPHRINE
     Indication: PRODUCT USED FOR UNKNOWN INDICATION
     Dosage: 10 ML / HOUR
  13. CLOPIDOGREL [Suspect]
     Active Substance: CLOPIDOGREL BISULFATE
     Indication: PRODUCT USED FOR UNKNOWN INDICATION
  14. TACROLIMUS. [Suspect]
     Active Substance: TACROLIMUS
     Indication: RENAL TRANSPLANT
     Dosage: UNK, UNKNOWN FREQ.
     Route: 065
  15. METHYLPREDNISOLONE. [Suspect]
     Active Substance: METHYLPREDNISOLONE
     Indication: PRODUCT USED FOR UNKNOWN INDICATION
     Dosage: 500 MG
     Route: 042
  16. CIPROFLOXACIN. [Suspect]
     Active Substance: CIPROFLOXACIN
     Indication: PRODUCT USED FOR UNKNOWN INDICATION
  17. ACETYLSALICYLIC ACID [Suspect]
     Active Substance: ASPIRIN
     Indication: PRODUCT USED FOR UNKNOWN INDICATION

REACTIONS (33)
  - Electrocardiogram ST segment depression [Unknown]
  - Delayed graft function [Unknown]
  - Anuria [Not Recovered/Not Resolved]
  - Pneumonitis [Not Recovered/Not Resolved]
  - Loss of consciousness [Unknown]
  - Oedema peripheral [Unknown]
  - Arteriosclerosis [Unknown]
  - Haematoma [Not Recovered/Not Resolved]
  - Inflammation [Recovering/Resolving]
  - Escherichia urinary tract infection [Unknown]
  - Acid base balance abnormal [Recovering/Resolving]
  - Extremity necrosis [Unknown]
  - Electrolyte imbalance [Recovered/Resolved]
  - Cardiotoxicity [Unknown]
  - Blood creatinine increased [Unknown]
  - Immunosuppressant drug level increased [Unknown]
  - Pulmonary congestion [Unknown]
  - Dyspnoea [Unknown]
  - Cardiogenic shock [Recovered/Resolved]
  - Arrhythmia [Unknown]
  - Acute coronary syndrome [Unknown]
  - Renal impairment [Unknown]
  - Upper respiratory tract infection [Unknown]
  - Coronary artery stenosis [Unknown]
  - Transplant rejection [Unknown]
  - Thrombocytosis [Unknown]
  - Anaemia [Unknown]
  - Intermittent claudication [Unknown]
  - Cardiac arrest [Not Recovered/Not Resolved]
  - Hypotonia [Unknown]
  - Cardiac failure [Unknown]
  - Brain natriuretic peptide increased [Unknown]
  - Diabetic macroangiopathy [Unknown]
